FAERS Safety Report 25164199 (Version 1)
Quarter: 2025Q2

REPORT INFORMATION
  Report Type: Other
  Country: JP (occurrence: JP)
  Receive Date: 20250405
  Receipt Date: 20250405
  Transmission Date: 20250717
  Serious: Yes (Life-Threatening)
  Sender: Kanchan Healthcare
  Company Number: JP-Kanchan Healthcare INC-2174352

PATIENT
  Sex: Male

DRUGS (5)
  1. DEXAMETHASONE [Suspect]
     Active Substance: DEXAMETHASONE
     Indication: Epstein-Barr virus infection
  2. DEXAMETHASONE [Suspect]
     Active Substance: DEXAMETHASONE
     Indication: Haemophagocytic lymphohistiocytosis
  3. CYCLOSPORINE [Concomitant]
     Active Substance: CYCLOSPORINE
  4. Immunoglobin [Concomitant]
  5. ETOPOSIDE [Concomitant]
     Active Substance: ETOPOSIDE

REACTIONS (2)
  - Infection [Unknown]
  - Drug ineffective for unapproved indication [Unknown]
